FAERS Safety Report 5648812-0 (Version None)
Quarter: 2008Q1

REPORT INFORMATION
  Report Type: 
  Country: None (occurrence: None)
  Receive Date: 20080304
  Receipt Date: 20080228
  Transmission Date: 20080703
  Serious: Yes (Other)
  Sender: FDA-Public Use
  Company Number: JP-ASTRAZENECA-2008AP01466

PATIENT
  Age: 75 Year
  Sex: Male
  Weight: 55 kg

DRUGS (3)
  1. DIPRIVAN [Suspect]
     Indication: SEDATION
     Route: 042
     Dates: start: 20080201, end: 20080201
  2. DOPAMINE HCL [Concomitant]
     Dosage: UNKNOWN DOSE
     Route: 065
  3. RADICUT [Concomitant]
     Dosage: UNKNOWN DOSE
     Route: 065

REACTIONS (2)
  - ALTERED STATE OF CONSCIOUSNESS [None]
  - ANURIA [None]
